FAERS Safety Report 16152621 (Version 1)
Quarter: 2019Q2

REPORT INFORMATION
  Report Type: Spontaneous
  Country: US (occurrence: US)
  Receive Date: 20190403
  Receipt Date: 20190403
  Transmission Date: 20190711
  Serious: No
  Sender: FDA-Public Use
  Company Number: US-SA-2019SA091820

PATIENT
  Age: 61 Year
  Sex: Female

DRUGS (1)
  1. KEVZARA [Suspect]
     Active Substance: SARILUMAB

REACTIONS (5)
  - Drug ineffective [Unknown]
  - Injection site reaction [Unknown]
  - Feeling hot [Unknown]
  - Erythema [Unknown]
  - Pruritus [Unknown]
